FAERS Safety Report 15954570 (Version 1)
Quarter: 2019Q1

REPORT INFORMATION
  Report Type: Spontaneous
  Country: GB (occurrence: GB)
  Receive Date: 20190213
  Receipt Date: 20190213
  Transmission Date: 20190417
  Serious: Yes (Hospitalization, Disabling)
  Sender: FDA-Public Use
  Company Number: GB-ROCHE-2259957

PATIENT
  Age: 6 Year
  Sex: Female
  Weight: 22.9 kg

DRUGS (8)
  1. METRONIDAZOLE. [Concomitant]
     Active Substance: METRONIDAZOLE
     Route: 065
     Dates: start: 20160104, end: 20170107
  2. CEFTRIAXONE. [Concomitant]
     Active Substance: CEFTRIAXONE
     Indication: LOWER RESPIRATORY TRACT INFECTION
     Route: 042
     Dates: start: 20190104, end: 20190107
  3. OSELTAMIVIR [Suspect]
     Active Substance: OSELTAMIVIR
     Indication: INFLUENZA
     Route: 042
     Dates: start: 20190104, end: 20190105
  4. DEXAMETHASONE. [Suspect]
     Active Substance: DEXAMETHASONE
     Indication: STRIDOR
     Route: 042
     Dates: start: 20190104, end: 20190105
  5. DIFFLAM [Concomitant]
     Active Substance: BENZYDAMINE HYDROCHLORIDE
     Route: 048
     Dates: start: 20190105
  6. OMEPRAZOLE. [Concomitant]
     Active Substance: OMEPRAZOLE
     Indication: GASTRITIS
     Route: 042
     Dates: start: 20190106
  7. EPINEPHRINE. [Concomitant]
     Active Substance: EPINEPHRINE
     Route: 065
     Dates: start: 20190104, end: 20190104
  8. METRONIDAZOLE. [Concomitant]
     Active Substance: METRONIDAZOLE
     Indication: LOWER RESPIRATORY TRACT INFECTION
     Route: 042
     Dates: start: 20190104, end: 20190107

REACTIONS (6)
  - Anger [Recovered/Resolved]
  - Poor quality sleep [Recovered/Resolved]
  - Abnormal behaviour [Recovered/Resolved]
  - Anxiety [Recovered/Resolved]
  - Emotional distress [Recovered/Resolved]
  - Fear of death [Recovered/Resolved]

NARRATIVE: CASE EVENT DATE: 20190104
